FAERS Safety Report 4318238-0 (Version None)
Quarter: 2004Q1

REPORT INFORMATION
  Report Type: 
  Country: None (occurrence: None)
  Receive Date: 20040315
  Receipt Date: 20040302
  Transmission Date: 20041129
  Serious: Yes (Other)
  Sender: FDA-Public Use
  Company Number: HQWYE618008MAR04

PATIENT
  Age: 18 Month
  Sex: Female

DRUGS (1)
  1. ADVIL [Suspect]
     Dosage: ORAL
     Route: 048
     Dates: start: 20040131, end: 20040131

REACTIONS (2)
  - ACCIDENTAL OVERDOSE [None]
  - SOMNOLENCE [None]
